FAERS Safety Report 10178015 (Version 1)
Quarter: 2014Q2

REPORT INFORMATION
  Report Type: Spontaneous
  Country: FR (occurrence: FR)
  Receive Date: 20140517
  Receipt Date: 20140517
  Transmission Date: 20141212
  Serious: Yes (Hospitalization)
  Sender: FDA-Public Use
  Company Number: FR-ROCHE-1401478

PATIENT
  Age: 63 Year
  Sex: Female

DRUGS (5)
  1. XELODA [Suspect]
     Indication: ANAL CANCER
     Dosage: 5 DAYS OUT OF 7
     Route: 048
     Dates: start: 20131104, end: 20131122
  2. AMETYCINE [Suspect]
     Indication: ANAL CANCER
     Route: 042
     Dates: start: 20130930, end: 20131104
  3. ONDANSETRON [Suspect]
     Indication: ANAL CANCER
     Dosage: 5 DAYS OUT OF 7
     Route: 048
     Dates: start: 20131104, end: 20131122
  4. THYROZOL [Concomitant]
  5. LYSANXIA [Concomitant]

REACTIONS (1)
  - Pulmonary hypertension [Recovered/Resolved]
